FAERS Safety Report 4977594-0 (Version None)
Quarter: 2006Q2

REPORT INFORMATION
  Report Type: 
  Country: None (occurrence: None)
  Receive Date: 20060413
  Receipt Date: 20060412
  Transmission Date: 20061013
  Serious: Yes (Other)
  Sender: FDA-Public Use
  Company Number: HQWYE798112APR06

PATIENT
  Age: 61 Year
  Sex: Female

DRUGS (2)
  1. CORDAREX (AMIODARONE, TABLET) [Suspect]
     Indication: ATRIAL FIBRILLATION
     Dosage: 200 M G 1X PER 1 DAY ORAL
     Route: 048
     Dates: start: 20050320, end: 20050801
  2. MICARDIS [Concomitant]

REACTIONS (1)
  - BRONCHITIS CHRONIC [None]
